FAERS Safety Report 8116488-9 (Version None)
Quarter: 2012Q1

REPORT INFORMATION
  Report Type: 
  Country: None (occurrence: None)
  Receive Date: 20120206
  Receipt Date: 20120130
  Transmission Date: 20120608
  Serious: Yes (Other)
  Sender: FDA-Public Use
  Company Number: US-ABBOTT-12P-163-0899498-00

PATIENT
  Sex: Male
  Weight: 81.266 kg

DRUGS (5)
  1. HUMIRA [Suspect]
     Indication: RHEUMATOID ARTHRITIS
     Dates: start: 20120101
  2. VOLTERIN GEL [Concomitant]
     Indication: PRODUCT USED FOR UNKNOWN INDICATION
  3. HUMIRA [Suspect]
     Indication: CROHN'S DISEASE
     Dates: start: 20080101, end: 20110101
  4. NEURONTIN [Concomitant]
     Indication: FIBROMYALGIA
  5. VOLTAREN [Concomitant]
     Indication: PRODUCT USED FOR UNKNOWN INDICATION

REACTIONS (8)
  - INFLUENZA LIKE ILLNESS [None]
  - CHONDROPATHY [None]
  - ARTHRITIS [None]
  - ARTHRALGIA [None]
  - JOINT SWELLING [None]
  - TENDON RUPTURE [None]
  - DRUG INEFFECTIVE [None]
  - WEIGHT BEARING DIFFICULTY [None]
